FAERS Safety Report 7107903-8 (Version None)
Quarter: 2010Q4

REPORT INFORMATION
  Report Type: 
  Country: None (occurrence: None)
  Receive Date: 20101117
  Receipt Date: 20101109
  Transmission Date: 20110411
  Serious: Yes (Hospitalization, Other)
  Sender: FDA-Public Use
  Company Number: US-ELI_LILLY_AND_COMPANY-US201011002828

PATIENT
  Age: 53 Year
  Sex: Female

DRUGS (2)
  1. ALIMTA [Suspect]
     Indication: NON-SMALL CELL LUNG CANCER
     Dosage: 500 MG/M2, UNK
     Route: 042
     Dates: start: 20100917, end: 20100920
  2. AVASTIN [Concomitant]
     Indication: NON-SMALL CELL LUNG CANCER
     Dates: start: 20100917, end: 20100920

REACTIONS (3)
  - BLOOD CREATININE INCREASED [None]
  - DYSPHAGIA [None]
  - SALIVARY HYPERSECRETION [None]
